FAERS Safety Report 7218254-5 (Version None)
Quarter: 2011Q1

REPORT INFORMATION
  Report Type: 
  Country: None (occurrence: None)
  Receive Date: 20110110
  Receipt Date: 20101229
  Transmission Date: 20110831
  Serious: Yes (Death, Hospitalization)
  Sender: FDA-Public Use
  Company Number: US-NOVEN-10US001433

PATIENT
  Age: 55 Year
  Sex: Male

DRUGS (6)
  1. PAXIL CR [Suspect]
     Dosage: 25 MG, QD
  2. DOXYCYCLINE [Suspect]
     Indication: ROCKY MOUNTAIN SPOTTED FEVER
  3. PAXIL CR [Suspect]
     Indication: PRODUCT USED FOR UNKNOWN INDICATION
     Dosage: 4.5 G, SINGLE
     Route: 065
  4. ATOMOXETINE HCL [Concomitant]
     Indication: PRODUCT USED FOR UNKNOWN INDICATION
  5. PAROXETINE HCL [Suspect]
     Indication: PRODUCT USED FOR UNKNOWN INDICATION
     Dosage: UNK, UNKNOWN
     Route: 065
  6. WELLBUTRIN [Concomitant]
     Indication: PRODUCT USED FOR UNKNOWN INDICATION

REACTIONS (19)
  - PULMONARY EMBOLISM [None]
  - COMPLETED SUICIDE [None]
  - WAXY FLEXIBILITY [None]
  - VITAL FUNCTIONS ABNORMAL [None]
  - DIARRHOEA [None]
  - WHITE BLOOD CELL COUNT INCREASED [None]
  - HYPERREFLEXIA [None]
  - DYSARTHRIA [None]
  - PNEUMONIA ASPIRATION [None]
  - PULSE ABSENT [None]
  - OVERDOSE [None]
  - TREMOR [None]
  - ENCEPHALOPATHY [None]
  - ELECTROCARDIOGRAM QT PROLONGED [None]
  - DISTURBANCE IN ATTENTION [None]
  - AGITATION [None]
  - BLOOD CREATINE PHOSPHOKINASE INCREASED [None]
  - DISORIENTATION [None]
  - SEROTONIN SYNDROME [None]
